FAERS Safety Report 8791487 (Version 1)
Quarter: 2012Q4

REPORT INFORMATION
  Report Type: Spontaneous
  Country: US (occurrence: None)
  Receive Date: 20120914
  Receipt Date: 20120914
  Transmission Date: 20130627
  Serious: Yes (Hospitalization)
  Sender: FDA-Public Use
  Company Number: None

PATIENT
  Age: 79 Year
  Sex: Male
  Weight: 90.72 kg

DRUGS (2)
  1. XARELTO [Suspect]
     Indication: ATRIAL FIBRILLATION
     Dosage: 1 tablet daily mouth 38 tab. used
     Route: 048
     Dates: start: 20120711, end: 20120814
  2. XARELTO [Suspect]
     Indication: ATRIAL FIBRILLATION
     Dosage: 39 tab. used
     Dates: start: 20120828

REACTIONS (1)
  - Blood urine present [None]
